FAERS Safety Report 9919678 (Version 1)
Quarter: 2014Q1

REPORT INFORMATION
  Report Type: Spontaneous
  Country: US (occurrence: US)
  Receive Date: 20140224
  Receipt Date: 20140224
  Transmission Date: 20141002
  Serious: Yes (Other)
  Sender: FDA-Public Use
  Company Number: PHHY2014US021174

PATIENT
  Age: 5 Year
  Sex: Female

DRUGS (1)
  1. CICLOSPORIN [Suspect]
     Indication: IMMUNOSUPPRESSION

REACTIONS (9)
  - Cystatin C increased [Unknown]
  - Urine protein/creatinine ratio increased [Unknown]
  - Complement factor increased [Unknown]
  - Pericardial effusion [Unknown]
  - Hypertension [Unknown]
  - Renal failure [Unknown]
  - Thrombotic microangiopathy [Unknown]
  - Posterior reversible encephalopathy syndrome [Unknown]
  - Convulsion [Unknown]
